FAERS Safety Report 7461747-6 (Version None)
Quarter: 2011Q2

REPORT INFORMATION
  Report Type: 
  Country: None (occurrence: None)
  Receive Date: 20110506
  Receipt Date: 20110427
  Transmission Date: 20111010
  Serious: Yes (Hospitalization)
  Sender: FDA-Public Use
  Company Number: KR-BAYER-2011-033600

PATIENT
  Age: 52 Year
  Sex: Male
  Weight: 64 kg

DRUGS (48)
  1. SORAFENIB (RAF KINASE INHIBITOR) [Suspect]
     Indication: HEPATIC NEOPLASM MALIGNANT
     Dosage: UNK
     Dates: start: 20110216
  2. ELECTROLYTE SOLUTIONS [Concomitant]
     Dosage: 0.2 ML, QD
     Route: 042
     Dates: start: 20110209, end: 20110209
  3. NAPROXEN [Concomitant]
     Indication: ABDOMINAL PAIN
     Dosage: 500 MG, BID
     Route: 048
     Dates: start: 20110210, end: 20110219
  4. ALPRAZOLAM [Concomitant]
     Dosage: 0.25 MG, QD
     Route: 048
     Dates: start: 20110223
  5. EUPATILIN [Concomitant]
     Dosage: 60 MG, QD
     Route: 048
     Dates: start: 20110202
  6. ADVANTAN [Concomitant]
     Indication: DERMATITIS ACNEIFORM
     Dosage: 100 ML, PRN
     Route: 061
     Dates: start: 20110316
  7. HYOSCINE HBR HYT [Concomitant]
     Indication: DIARRHOEA
     Dosage: 20 MG, QD
     Route: 042
     Dates: start: 20110417, end: 20110417
  8. PANCREATIC ENZYMES [Concomitant]
     Dosage: 457.7 MG, BID
     Route: 048
     Dates: start: 20110202, end: 20110205
  9. L-CARNITINE [Concomitant]
     Dosage: 1C TID
     Dates: start: 20110208, end: 20110223
  10. URSACOL [Concomitant]
     Dosage: 100 MG, TID
     Route: 048
     Dates: start: 20110208
  11. CELEBREX [Concomitant]
     Dosage: 200 MG, BID
     Route: 048
     Dates: start: 20110209, end: 20110209
  12. PANCREATIC ENZYMES [Concomitant]
     Dosage: 457.7 MG, TID
     Route: 048
     Dates: start: 20110417
  13. TAGAMET [Concomitant]
     Indication: ABDOMINAL PAIN
     Dosage: 200 MG, QD
     Route: 042
     Dates: start: 20110202, end: 20110202
  14. TAGAMET [Concomitant]
     Dosage: 200 MG
     Route: 042
     Dates: start: 20110417, end: 20110417
  15. ANALGESICS [Concomitant]
     Indication: ABDOMINAL PAIN
     Dosage: 2C, TID
     Route: 048
     Dates: start: 20110207, end: 20110213
  16. MAGNESIUM OXIDE [Concomitant]
     Dosage: 500 MG, TID
     Route: 048
     Dates: start: 20110223, end: 20110316
  17. URSACOL [Concomitant]
     Indication: ASPARTATE AMINOTRANSFERASE INCREASED
     Dosage: 100 MG, TID
     Route: 048
     Dates: start: 20110208
  18. POFOL [Concomitant]
     Dosage: 120 MG, QD
     Route: 042
     Dates: start: 20110210, end: 20110210
  19. EUPATILIN [Concomitant]
     Dosage: 60 MG, TID
     Route: 048
     Dates: start: 20110201, end: 20110201
  20. PANCREATIC ENZYMES [Concomitant]
     Dosage: 457.7 MG, TID
     Route: 048
     Dates: start: 20110330
  21. CEFPIRAN [Concomitant]
     Indication: PYREXIA
     Dosage: 1 G, BID
     Route: 042
     Dates: start: 20110209, end: 20110214
  22. SMECTA [SMECTITE] [Concomitant]
     Indication: DIARRHOEA
     Dosage: 20 ML, TID
     Route: 048
     Dates: start: 20110223, end: 20110223
  23. EUPATILIN [Concomitant]
     Dosage: 60 MG, TID
     Route: 048
     Dates: start: 20110330
  24. STILNOX [Concomitant]
     Dosage: 10 MG, PRN
     Route: 048
     Dates: start: 20110330
  25. DUAC [Concomitant]
     Indication: DERMATITIS ACNEIFORM
     Dosage: 25 G, PRN
     Route: 061
     Dates: start: 20110309
  26. OXYCONTIN [Concomitant]
     Indication: ABDOMINAL PAIN
     Dosage: 10 MG, BID
     Route: 048
     Dates: start: 20110202
  27. KETOROLAC TROMETHAMINE [Concomitant]
     Indication: ABDOMINAL PAIN
     Dosage: 30 MG, QD
     Route: 042
     Dates: start: 20110202, end: 20110202
  28. OXYCODONE [Concomitant]
     Dosage: 5 MG, QD
     Route: 048
     Dates: start: 20110214
  29. MEGESTROL ACETATE [Concomitant]
     Indication: DECREASED APPETITE
     Dosage: 10 ML, QD
     Route: 048
     Dates: start: 20110208, end: 20110209
  30. TRIDOL [Concomitant]
     Indication: ABDOMINAL PAIN
     Dosage: 50 MG, QD
     Route: 030
     Dates: start: 20110209, end: 20110209
  31. TRIDOL [Concomitant]
     Dosage: 50 MG, QD
     Route: 042
     Dates: start: 20110418
  32. STILNOX [Concomitant]
     Indication: INSOMNIA
     Dosage: 6.25 MG, PRN
     Route: 048
     Dates: start: 20110316, end: 20110329
  33. MEK INHIBITOR (DIHYDROXYPROP-DIFLU-METHOXYPHEN-CYCLOPROPA-SULFAMI) [Suspect]
     Indication: HEPATIC NEOPLASM MALIGNANT
     Dosage: UNK
     Dates: start: 20110216
  34. OXYCONTIN [Concomitant]
     Dosage: 10 MG, TID
     Route: 048
     Dates: start: 20110330
  35. TRIDOL [Concomitant]
     Dosage: 50 MG, QD
     Route: 042
     Dates: start: 20110213, end: 20110213
  36. BUSCOPAN [Concomitant]
     Indication: ABDOMINAL PAIN
     Dosage: 40 MG, QD
     Route: 042
     Dates: start: 20110210, end: 20110210
  37. METOCLOPRAMIDE [Concomitant]
     Indication: ABDOMINAL PAIN
     Dosage: 10 MG, QD
     Route: 042
     Dates: start: 20110202, end: 20110202
  38. MAGNESIUM OXIDE [Concomitant]
     Dosage: 500 MG, TID
     Route: 048
     Dates: start: 20110207, end: 20110213
  39. MAGNESIUM OXIDE [Concomitant]
     Dosage: 500 MG, TID
     Route: 048
     Dates: start: 20110207, end: 20110216
  40. L-CARNITINE [Concomitant]
     Indication: ASPARTATE AMINOTRANSFERASE INCREASED
     Dosage: 2C,TID
     Dates: start: 20110207
  41. BARACLUDE [Concomitant]
     Indication: HEPATITIS
     Dosage: 0.5 MG, BID
     Route: 048
     Dates: start: 20110209, end: 20110214
  42. ALBUMIN (HUMAN) [Concomitant]
     Dosage: 100 ML, QD
     Route: 042
     Dates: start: 20110330
  43. MUSCLE RELAXANT [Concomitant]
     Indication: MUSCULOSKELETAL DISCOMFORT
     Dosage: 50 MG, TID
     Route: 048
     Dates: start: 20110201, end: 20110210
  44. METOCLOPRAMIDE [Concomitant]
     Dosage: 10 MG, QD
     Route: 042
     Dates: start: 20110417, end: 20110417
  45. OXYCODONE [Concomitant]
     Indication: ABDOMINAL PAIN
     Dosage: 5 MG, TID
     Route: 048
     Dates: start: 20110207
  46. SUPRAX [Concomitant]
     Indication: ABDOMINAL PAIN
     Dosage: 100 MG, BID
     Route: 048
     Dates: start: 20110214, end: 20110218
  47. ALPRAZOLAM [Concomitant]
     Indication: INSOMNIA
     Dosage: 0.25 MG, QD
     Route: 048
     Dates: start: 20110223, end: 20110225
  48. BENZYDAMINE [Concomitant]
     Dosage: 100 ML, PRN
     Dates: start: 20110316

REACTIONS (2)
  - PNEUMATOSIS INTESTINALIS [None]
  - PNEUMOPERITONEUM [None]
